FAERS Safety Report 17365926 (Version 1)
Quarter: 2020Q1

REPORT INFORMATION
  Report Type: Spontaneous
  Country: US (occurrence: US)
  Receive Date: 20200204
  Receipt Date: 20200204
  Transmission Date: 20200409
  Serious: Yes (Hospitalization, Other)
  Sender: FDA-Public Use
  Company Number: US-ROCHE-2530810

PATIENT
  Age: 39 Year
  Sex: Male

DRUGS (9)
  1. DELAVIRDINE [Interacting]
     Active Substance: DELAVIRDINE
     Indication: ACQUIRED IMMUNODEFICIENCY SYNDROME
     Route: 065
     Dates: start: 199701
  2. ZALCITABINE [Concomitant]
     Active Substance: ZALCITABINE
     Indication: ACQUIRED IMMUNODEFICIENCY SYNDROME
  3. SAQUINAVIR [Suspect]
     Active Substance: SAQUINAVIR
     Indication: ACQUIRED IMMUNODEFICIENCY SYNDROME
     Route: 065
     Dates: start: 199701
  4. LAMIVUDINE. [Concomitant]
     Active Substance: LAMIVUDINE
     Indication: ACQUIRED IMMUNODEFICIENCY SYNDROME
  5. ZIDOVUDINE. [Concomitant]
     Active Substance: ZIDOVUDINE
     Indication: ACQUIRED IMMUNODEFICIENCY SYNDROME
  6. STAVUDINE. [Concomitant]
     Active Substance: STAVUDINE
     Indication: ACQUIRED IMMUNODEFICIENCY SYNDROME
  7. INDINAVIR [Concomitant]
     Active Substance: INDINAVIR
     Indication: ACQUIRED IMMUNODEFICIENCY SYNDROME
  8. PACLITAXEL. [Interacting]
     Active Substance: PACLITAXEL
     Indication: KAPOSI^S SARCOMA
     Dosage: 3 HOUR EVERY OTHER WEEK
     Route: 065
     Dates: start: 199605
  9. DIDANOSINE. [Concomitant]
     Active Substance: DIDANOSINE
     Indication: ACQUIRED IMMUNODEFICIENCY SYNDROME
     Route: 065
     Dates: start: 199701

REACTIONS (5)
  - Drug interaction [Unknown]
  - Respiratory distress [Recovered/Resolved]
  - Mucosal inflammation [Recovered/Resolved]
  - Febrile neutropenia [Recovered/Resolved]
  - Respiratory failure [Recovered/Resolved]
